FAERS Safety Report 18575564 (Version 5)
Quarter: 2021Q2

REPORT INFORMATION
  Report Type: Report from Study
  Country: GB (occurrence: GB)
  Receive Date: 20201203
  Receipt Date: 20210622
  Transmission Date: 20210717
  Serious: Yes (Hospitalization)
  Sender: FDA-Public Use
  Company Number: GB-SAMSUNG BIOEPIS-SB-2020-36018

PATIENT
  Sex: Female

DRUGS (1)
  1. IMRALDI [Suspect]
     Active Substance: ADALIMUMAB
     Indication: RHEUMATOID ARTHRITIS
     Route: 058
     Dates: start: 20201019

REACTIONS (11)
  - COVID-19 [Unknown]
  - Pain [Unknown]
  - Back pain [Unknown]
  - Sensitivity to weather change [Unknown]
  - Walking aid user [Unknown]
  - Depression [Unknown]
  - Drug ineffective [Unknown]
  - Sleep disorder [Unknown]
  - Pain in extremity [Unknown]
  - Weight decreased [Unknown]
  - Arthralgia [Unknown]
